FAERS Safety Report 5035543-3 (Version None)
Quarter: 2006Q2

REPORT INFORMATION
  Report Type: 
  Country: None (occurrence: None)
  Receive Date: 20060526
  Receipt Date: 20060130
  Transmission Date: 20061013
  Serious: No
  Sender: FDA-Public Use
  Company Number: 221341

PATIENT
  Age: 52 Year
  Sex: Female

DRUGS (3)
  1. RAPTIVA [Suspect]
     Indication: PSORIASIS
     Dosage: 0.7 ML, 1/WEEK, SUBCUTANEOUS
     Route: 058
     Dates: start: 20051222
  2. EUCERIN (UNSCENTED MOISTURIZING FORMULA) [Concomitant]
  3. DIPROLENE LOTION (BETAMETHASONE DIPROPIONATE) [Concomitant]

REACTIONS (1)
  - CONTUSION [None]
